FAERS Safety Report 15653220 (Version 1)
Quarter: 2018Q4

REPORT INFORMATION
  Report Type: Spontaneous
  Country: NL (occurrence: NL)
  Receive Date: 20181123
  Receipt Date: 20181123
  Transmission Date: 20190205
  Serious: Yes (Hospitalization)
  Sender: FDA-Public Use
  Company Number: NL-TEVA-2018-NL-978332

PATIENT
  Age: 45 Year
  Sex: Female
  Weight: 94 kg

DRUGS (9)
  1. HYDROXOCOBALAMINE INJVLST 500UG/ML AMP 2ML [Concomitant]
     Route: 065
  2. BECLOMETASON/FORMOTEROL AEROSOL 100/6UG/DO [Concomitant]
     Dosage: 2DD2
  3. DEXAMETHASON 0,5MG [Concomitant]
     Dosage: 1DD0,5MG
  4. COLECALCIFEROL DRANK 50.000IE/ML [Concomitant]
     Dosage: 1XPER WEEK 0,5MILLILITER
  5. FOLIUMZUUR [Concomitant]
     Active Substance: FOLIC ACID
     Dosage: 10MG/WEEK
  6. PARACETAMOL 500MG [Concomitant]
     Active Substance: ACETAMINOPHEN
     Dosage: 4DD1000MG
  7. METHOTREXAAT TABLET, 2,5 MG (MILLIGRAM) [Suspect]
     Active Substance: METHOTREXATE SODIUM
     Indication: DERMATOMYOSITIS
     Dosage: 1 ? PER WEEK 8 STUKS
     Dates: start: 20180312, end: 20180820
  8. DERMOVATE ZALF [Concomitant]
     Dosage: 2DD
  9. HYDROXYCHLOROQUINE 200MG [Concomitant]
     Active Substance: HYDROXYCHLOROQUINE
     Dosage: 2DD200MG

REACTIONS (2)
  - Myelodysplastic syndrome [Not Recovered/Not Resolved]
  - Pancytopenia [Not Recovered/Not Resolved]

NARRATIVE: CASE EVENT DATE: 20180927
